FAERS Safety Report 7555882-1 (Version None)
Quarter: 2011Q2

REPORT INFORMATION
  Report Type: 
  Country: None (occurrence: None)
  Receive Date: 20110618
  Receipt Date: 20110523
  Transmission Date: 20111010
  Serious: Yes (Hospitalization, Other)
  Sender: FDA-Public Use
  Company Number: US-BAYER-2010-002143

PATIENT
  Sex: Female
  Weight: 116.1 kg

DRUGS (10)
  1. YASMIN [Suspect]
     Indication: CONTRACEPTION
     Dosage: UNK
     Dates: start: 20030401, end: 20091001
  2. BACLOFEN [Concomitant]
     Dosage: UNK
     Dates: start: 20040302
  3. MEDROXYPROGESTERONE ACETATE [Concomitant]
     Dosage: UNK
     Dates: start: 20030411
  4. TYLENOL W/ CODEINE NO. 3 [Concomitant]
  5. DIFLUCAN [Concomitant]
     Dosage: UNK
     Dates: start: 20030303
  6. HYDROCODONE BITARTRATE AND ACETAMINOPHEN [Concomitant]
     Dosage: UNK
     Dates: start: 20040302
  7. VICODIN [Concomitant]
  8. FIBERCON [Concomitant]
  9. VITAMIN TAB [Concomitant]
  10. OMEPRAZOLE [Concomitant]
     Dosage: UNK
     Dates: start: 20030216

REACTIONS (1)
  - CHOLELITHIASIS [None]
